FAERS Safety Report 9665243 (Version 2)
Quarter: 2014Q1

REPORT INFORMATION
  Report Type: Spontaneous
  Country: US (occurrence: US)
  Receive Date: 20131101
  Receipt Date: 20140129
  Transmission Date: 20141002
  Serious: No
  Sender: FDA-Public Use
  Company Number: US-PFIZER INC-2013308685

PATIENT
  Sex: Female

DRUGS (20)
  1. AMPICILLIN [Suspect]
     Dosage: UNK
  2. CIPROFLOXACIN [Suspect]
     Dosage: UNK
  3. DOXYCYCLINE HYCLATE [Suspect]
     Dosage: UNK
  4. ERYTHROMYCIN [Suspect]
     Dosage: UNK
  5. METHOTREXATE SODIUM [Suspect]
     Dosage: UNK
  6. GEODON [Suspect]
     Dosage: UNK
  7. DIAMOX [Suspect]
     Dosage: UNK
  8. KEFALEX [Suspect]
     Dosage: UNK
  9. CYCLOSPORIN A [Suspect]
     Dosage: UNK
  10. COLCHICINE [Suspect]
     Dosage: UNK
  11. LASIX [Suspect]
     Dosage: UNK
  12. DIAZIDE [Suspect]
     Dosage: UNK
  13. HEPATITIS B VACCINE [Suspect]
     Dosage: UNK
  14. HYDRALAZINE HYDROCHLORIDE [Suspect]
     Dosage: UNK
  15. DILAUDID [Suspect]
     Dosage: UNK
  16. PLAQUENIL [Suspect]
     Dosage: UNK
  17. ARAVA [Suspect]
     Dosage: UNK
  18. COMPAZINE [Suspect]
     Dosage: UNK
  19. TRAMADOL [Suspect]
     Dosage: UNK
  20. ACTIFED [Suspect]
     Dosage: UNK

REACTIONS (1)
  - Drug hypersensitivity [Unknown]
